FAERS Safety Report 23178533 (Version 1)
Quarter: 2023Q4

REPORT INFORMATION
  Report Type: Spontaneous
  Country: BR (occurrence: BR)
  Receive Date: 20231113
  Receipt Date: 20231113
  Transmission Date: 20240109
  Serious: Yes (Hospitalization, Other)
  Sender: FDA-Public Use
  Company Number: BR-002147023-NVSC2023BR198208

PATIENT
  Age: 45 Year
  Sex: Female

DRUGS (7)
  1. ANASTROZOLE [Suspect]
     Active Substance: ANASTROZOLE
     Indication: Product used for unknown indication
     Dosage: UNK
     Route: 065
  2. GABAPENTIN [Suspect]
     Active Substance: GABAPENTIN
     Indication: Product used for unknown indication
     Dosage: UNK
     Route: 065
  3. KISQALI [Suspect]
     Active Substance: RIBOCICLIB
     Indication: Metastases to bone
     Dosage: UNK
     Route: 065
  4. KISQALI [Suspect]
     Active Substance: RIBOCICLIB
     Indication: Breast cancer metastatic
     Dosage: 200 MG
     Route: 065
     Dates: start: 20230330
  5. ZOLEDRONIC ACID [Suspect]
     Active Substance: ZOLEDRONIC ACID
     Indication: Breast cancer
     Dosage: UNK
     Route: 065
  6. ELIGARD [Concomitant]
     Active Substance: LEUPROLIDE ACETATE
     Indication: Hormone level abnormal
     Dosage: UNK
     Route: 065
  7. LEUPROLIDE ACETATE [Concomitant]
     Active Substance: LEUPROLIDE ACETATE
     Indication: Breast cancer
     Dosage: UNK
     Route: 065

REACTIONS (32)
  - Headache [Recovered/Resolved]
  - Gait disturbance [Recovered/Resolved]
  - Vomiting [Recovered/Resolved]
  - Pyrexia [Recovered/Resolved]
  - Breast cancer [Recovered/Resolved]
  - Malignant neoplasm progression [Recovered/Resolved]
  - Suicidal ideation [Unknown]
  - Anxiety [Unknown]
  - Back pain [Recovered/Resolved]
  - Arthralgia [Recovered/Resolved]
  - Seborrhoea [Unknown]
  - Bone pain [Recovered/Resolved]
  - General physical health deterioration [Unknown]
  - Fear [Unknown]
  - Influenza [Unknown]
  - Nasal congestion [Unknown]
  - Pain [Unknown]
  - Unevaluable event [Unknown]
  - Asthenia [Unknown]
  - Alopecia [Unknown]
  - Product prescribing issue [Unknown]
  - Product availability issue [Unknown]
  - Product dose omission issue [Unknown]
  - Platelet count increased [Recovered/Resolved]
  - Blood test abnormal [Recovered/Resolved]
  - Anaemia [Recovering/Resolving]
  - White blood cell count increased [Recovered/Resolved]
  - Bone disorder [Unknown]
  - Nausea [Recovered/Resolved]
  - Urinary tract infection [Recovered/Resolved]
  - Hair growth abnormal [Unknown]
  - Carbohydrate antigen 15-3 increased [Recovered/Resolved]

NARRATIVE: CASE EVENT DATE: 20230924
